FAERS Safety Report 4974487-X (Version None)
Quarter: 2006Q2

REPORT INFORMATION
  Report Type: 
  Country: None (occurrence: None)
  Receive Date: 20060410
  Receipt Date: 20060327
  Transmission Date: 20061013
  Serious: Yes (Other)
  Sender: FDA-Public Use
  Company Number: 2006007992

PATIENT
  Age: 77 Year
  Sex: Male

DRUGS (4)
  1. TOLTERODINE TARTRATE [Suspect]
     Indication: URINARY INCONTINENCE
     Dosage: 4 MG (4 MG, 1 IN 1 D), ORAL
     Route: 048
     Dates: start: 20060103, end: 20060111
  2. COAPROVEL (HYDROCHLOROTHIAZIDE, IRBESARTAN) [Concomitant]
  3. ASPIRIN [Concomitant]
  4. ALLOPURINOL [Concomitant]

REACTIONS (3)
  - AMAUROSIS FUGAX [None]
  - CAROTID ARTERY ATHEROMA [None]
  - CAROTID ARTERY STENOSIS [None]
